FAERS Safety Report 4801860-2 (Version None)
Quarter: 2005Q4

REPORT INFORMATION
  Report Type: 
  Country: None (occurrence: None)
  Receive Date: 20051018
  Receipt Date: 20050919
  Transmission Date: 20060501
  Serious: Yes (Other)
  Sender: FDA-Public Use
  Company Number: PHNU2005DE03241

PATIENT
  Age: 63 Year
  Sex: Male
  Weight: 90 kg

DRUGS (3)
  1. ZOMETA [Suspect]
     Indication: PROSTATE CANCER
     Dosage: 4 MG, ONCE/SINGLE
     Route: 042
     Dates: start: 20050908, end: 20050908
  2. CASODEX [Concomitant]
     Route: 048
  3. MARCUMAR [Concomitant]
     Route: 048

REACTIONS (4)
  - CONJUNCTIVAL OEDEMA [None]
  - EYE MOVEMENT DISORDER [None]
  - GLAUCOMA [None]
  - OCULAR HYPERTENSION [None]
